FAERS Safety Report 8585272-4 (Version None)
Quarter: 2012Q3

REPORT INFORMATION
  Report Type: 
  Country: None (occurrence: None)
  Receive Date: 20120810
  Receipt Date: 20120809
  Transmission Date: 20120928
  Serious: Yes (Other)
  Sender: FDA-Public Use
  Company Number: PHHY2012BR046494

PATIENT
  Age: 67 Year
  Sex: Female

DRUGS (6)
  1. VITAMIN D [Concomitant]
     Indication: TRAUMATIC FRACTURE
     Dates: start: 20110401, end: 20120401
  2. ACETAMINOPHEN [Concomitant]
     Dosage: 1500/DAY, DURING 3 DAYS
  3. ZOLEDRONOC ACID [Suspect]
     Indication: TRAUMATIC FRACTURE
     Dosage: 5 MG,
     Route: 042
     Dates: start: 20110401
  4. CORTICOSTEROIDS [Concomitant]
  5. CALCIUM [Concomitant]
     Indication: TRAUMATIC FRACTURE
     Dates: start: 20110401, end: 20120401
  6. ZOLEDRONOC ACID [Suspect]
     Dosage: 5 MG,
     Route: 042
     Dates: start: 20120501

REACTIONS (4)
  - FEMORAL NECK FRACTURE [None]
  - FRACTURE [None]
  - OSTEONECROSIS [None]
  - PAIN [None]
